FAERS Safety Report 20378750 (Version 2)
Quarter: 2022Q3

REPORT INFORMATION
  Report Type: Spontaneous
  Country: US (occurrence: US)
  Receive Date: 20220126
  Receipt Date: 20220805
  Transmission Date: 20221027
  Serious: No
  Sender: FDA-Public Use
  Company Number: US-PFIZER INC-2021855798

PATIENT
  Age: 88 Year
  Sex: Female
  Weight: 55.329 kg

DRUGS (1)
  1. PREMARIN [Suspect]
     Active Substance: ESTROGENS, CONJUGATED
     Indication: Menopause
     Dosage: INSERT ONE GRAM VAGINALLY TWICE WEEKLY (SUNDAY AND WEDNESDAY)
     Route: 067

REACTIONS (1)
  - Off label use [Unknown]
